FAERS Safety Report 17091052 (Version 1)
Quarter: 2019Q4

REPORT INFORMATION
  Report Type: Spontaneous
  Country: SE (occurrence: SE)
  Receive Date: 20191129
  Receipt Date: 20191129
  Transmission Date: 20200122
  Serious: Yes (Hospitalization, Other)
  Sender: FDA-Public Use
  Company Number: SE-SA-2019SA326833

PATIENT
  Sex: Female

DRUGS (5)
  1. ESCITALOPRAM OXALATE. [Suspect]
     Active Substance: ESCITALOPRAM OXALATE
     Dosage: TABLET
     Route: 048
     Dates: start: 20180401, end: 20180401
  2. PROMETHAZINE HYDROCHLORIDE. [Suspect]
     Active Substance: PROMETHAZINE HYDROCHLORIDE
     Dosage: UNK UNK, UNK
     Route: 048
     Dates: start: 20180401, end: 20180401
  3. ZOLPIDEM TARTRATE. [Suspect]
     Active Substance: ZOLPIDEM TARTRATE
     Dosage: UNK UNK, UNK
     Route: 048
     Dates: start: 20180401, end: 20180401
  4. PREGABALIN. [Suspect]
     Active Substance: PREGABALIN
     Dosage: TABLET
     Route: 048
     Dates: start: 20180401, end: 20180401
  5. MELATONIN [Suspect]
     Active Substance: MELATONIN
     Dosage: TABLET
     Route: 048
     Dates: start: 20180401, end: 20180401

REACTIONS (3)
  - Tachycardia [Unknown]
  - Intentional self-injury [Unknown]
  - Intentional overdose [Unknown]

NARRATIVE: CASE EVENT DATE: 20180401
